FAERS Safety Report 5819165-X (Version None)
Quarter: 2008Q3

REPORT INFORMATION
  Report Type: 
  Country: None (occurrence: None)
  Receive Date: 20080723
  Receipt Date: 20080717
  Transmission Date: 20090109
  Serious: Yes (Other)
  Sender: FDA-Public Use
  Company Number: A0738939A

PATIENT
  Age: 16 Year
  Sex: Male

DRUGS (2)
  1. FLIXONASE [Suspect]
     Indication: SINUSITIS
     Dosage: 50MCG UNKNOWN
     Route: 045
     Dates: start: 20080615
  2. ATENOLOL [Concomitant]

REACTIONS (3)
  - DIZZINESS [None]
  - HEADACHE [None]
  - HYPERTENSIVE CRISIS [None]
